FAERS Safety Report 24172749 (Version 3)
Quarter: 2024Q4

REPORT INFORMATION
  Report Type: Spontaneous
  Country: FR (occurrence: FR)
  Receive Date: 20240805
  Receipt Date: 20241031
  Transmission Date: 20250115
  Serious: Yes (Other)
  Sender: NOVARTIS
  Company Number: FR-AMGEN-FRASP2024144681

PATIENT
  Age: 4 Year
  Sex: Male

DRUGS (7)
  1. TISAGENLECLEUCEL [Suspect]
     Active Substance: TISAGENLECLEUCEL
     Indication: B precursor type acute leukaemia
     Dosage: FIRST INFUSION
     Route: 065
     Dates: start: 2020
  2. TISAGENLECLEUCEL [Suspect]
     Active Substance: TISAGENLECLEUCEL
     Indication: Central nervous system leukaemia
     Dosage: RE-INFUSION (0.5*106 DONOR-DERIVED-CAR-POSITIVE VIABLE T CELLS/KG
     Route: 065
     Dates: start: 2020
  3. NIVOLUMAB [Concomitant]
     Active Substance: NIVOLUMAB
     Indication: B-cell type acute leukaemia
     Dosage: THREE INFUSIONS
     Route: 065
     Dates: start: 2020, end: 2020
  4. FLUDARABINE [Concomitant]
     Active Substance: FLUDARABINE PHOSPHATE
     Indication: Chemotherapy
     Dosage: 120 MG/M2 (FIRST THERAPY)
     Route: 065
     Dates: start: 2020, end: 2020
  5. FLUDARABINE [Concomitant]
     Active Substance: FLUDARABINE PHOSPHATE
     Dosage: 30 MG/M2 (SECOND THERAPY)
     Route: 065
     Dates: start: 2020, end: 2020
  6. CYCLOPHOSPHAMIDE [Concomitant]
     Active Substance: CYCLOPHOSPHAMIDE
     Indication: Chemotherapy
     Dosage: 1 GRAM PER SQURE METRE (FIRST THERAPY
     Route: 065
     Dates: start: 2020, end: 2020
  7. CYCLOPHOSPHAMIDE [Concomitant]
     Active Substance: CYCLOPHOSPHAMIDE
     Dosage: 500 MG/M2
     Route: 065
     Dates: start: 2020, end: 2020

REACTIONS (3)
  - Treatment failure [Unknown]
  - Acute lymphocytic leukaemia recurrent [Unknown]
  - Off label use [Unknown]
